FAERS Safety Report 4810817-7 (Version None)
Quarter: 2005Q4

REPORT INFORMATION
  Report Type: 
  Country: None (occurrence: None)
  Receive Date: 20051024
  Receipt Date: 20051012
  Transmission Date: 20060501
  Serious: Yes (Death)
  Sender: FDA-Public Use
  Company Number: USA-2005-0021520

PATIENT
  Age: 44 Year
  Sex: 0

DRUGS (2)
  1. OXYCODONE HYDROCHLORIDE (SIMILAR TO NDA 20-553)(OXYCODONE HYDROCHLORID [Suspect]
  2. ACETAMINOPHEN [Suspect]

REACTIONS (1)
  - MEDICATION ERROR [None]
